FAERS Safety Report 23432770 (Version 1)
Quarter: 2024Q1

REPORT INFORMATION
  Report Type: Report from Study
  Country: None (occurrence: US)
  Receive Date: 20240123
  Receipt Date: 20240123
  Transmission Date: 20240410
  Serious: Yes (Disabling)
  Sender: FDA-Public Use
  Company Number: US-SERB S.A.S.-2151867

PATIENT
  Age: 21 Year
  Sex: Male

DRUGS (1)
  1. CROFAB [Suspect]
     Active Substance: CROTALIDAE POLYVALENT IMMUNE FAB (OVINE)
     Indication: Snake bite

REACTIONS (3)
  - Mobility decreased [Unknown]
  - Off label use [Recovered/Resolved]
  - Underdose [Recovered/Resolved]
